FAERS Safety Report 17158987 (Version 2)
Quarter: 2020Q1

REPORT INFORMATION
  Report Type: Spontaneous
  Country: CO (occurrence: CO)
  Receive Date: 20191216
  Receipt Date: 20200217
  Transmission Date: 20200409
  Serious: Yes (Hospitalization, Other)
  Sender: FDA-Public Use
  Company Number: CO-PFIZER INC-2019536579

PATIENT
  Age: 76 Year
  Sex: Female

DRUGS (1)
  1. REAMPLA [Suspect]
     Active Substance: PALBOCICLIB
     Dosage: 125 MG, UNK

REACTIONS (4)
  - Lung disorder [Unknown]
  - Malaise [Unknown]
  - Alopecia [Unknown]
  - Pulmonary thrombosis [Not Recovered/Not Resolved]
